FAERS Safety Report 15697512 (Version 2)
Quarter: 2018Q4

REPORT INFORMATION
  Report Type: Spontaneous
  Country: US (occurrence: US)
  Receive Date: 20181207
  Receipt Date: 20181207
  Transmission Date: 20190205
  Serious: No
  Sender: FDA-Public Use
  Company Number: US-009507513-1812USA002941

PATIENT
  Sex: Female

DRUGS (6)
  1. LATANOPROST. [Suspect]
     Active Substance: LATANOPROST
     Indication: INTRAOCULAR PRESSURE INCREASED
  2. BRIMONIDINE TARTRATE. [Suspect]
     Active Substance: BRIMONIDINE TARTRATE
     Indication: INTRAOCULAR PRESSURE INCREASED
  3. TRUSOPT [Suspect]
     Active Substance: DORZOLAMIDE HYDROCHLORIDE
     Indication: INTRAOCULAR PRESSURE INCREASED
     Dosage: UNK
  4. TIMOLOL. [Suspect]
     Active Substance: TIMOLOL
     Indication: INTRAOCULAR PRESSURE INCREASED
  5. BIMATOPROST. [Suspect]
     Active Substance: BIMATOPROST
     Indication: INTRAOCULAR PRESSURE INCREASED
  6. BRINZOLAMIDE [Suspect]
     Active Substance: BRINZOLAMIDE
     Indication: INTRAOCULAR PRESSURE INCREASED

REACTIONS (2)
  - Product use in unapproved indication [Unknown]
  - Drug intolerance [Unknown]
